FAERS Safety Report 7078389-7 (Version None)
Quarter: 2010Q4

REPORT INFORMATION
  Report Type: 
  Country: None (occurrence: None)
  Receive Date: 20101101
  Receipt Date: 20101101
  Transmission Date: 20110411
  Serious: No
  Sender: FDA-Public Use
  Company Number: None

PATIENT
  Age: 20 Year
  Sex: Female
  Weight: 72.5755 kg

DRUGS (1)
  1. MIRENA [Suspect]
     Indication: CONTRACEPTION
     Dosage: 20 ?G DAY VAG
     Route: 067
     Dates: start: 20100207, end: 20101031

REACTIONS (14)
  - ABDOMINAL PAIN [None]
  - ACNE [None]
  - BACK PAIN [None]
  - DEPRESSION [None]
  - FATIGUE [None]
  - HEADACHE [None]
  - LOSS OF LIBIDO [None]
  - MENORRHAGIA [None]
  - MOOD SWINGS [None]
  - MUSCLE SPASMS [None]
  - OEDEMA PERIPHERAL [None]
  - PANIC ATTACK [None]
  - URTICARIA [None]
  - WEIGHT INCREASED [None]
